FAERS Safety Report 13646418 (Version 1)
Quarter: 2017Q2

REPORT INFORMATION
  Report Type: Spontaneous
  Country: US (occurrence: US)
  Receive Date: 20170612
  Receipt Date: 20170612
  Transmission Date: 20170830
  Serious: Yes (Hospitalization)
  Sender: FDA-Public Use
  Company Number: None

PATIENT
  Age: 50 Year
  Sex: Male

DRUGS (16)
  1. ALBUTEROL. [Concomitant]
     Active Substance: ALBUTEROL
  2. ASPIRIIN EC [Concomitant]
  3. EFFIENT [Concomitant]
     Active Substance: PRASUGREL HYDROCHLORIDE
  4. GEMFIBROZIL. [Concomitant]
     Active Substance: GEMFIBROZIL
  5. ISOSORBIDE MONONITRATE. [Concomitant]
     Active Substance: ISOSORBIDE MONONITRATE
  6. GABAPENTIN. [Concomitant]
     Active Substance: GABAPENTIN
  7. LOPERAMIDE HCL [Concomitant]
     Active Substance: LOPERAMIDE HYDROCHLORIDE
  8. ACETAMINOPHEN. [Concomitant]
     Active Substance: ACETAMINOPHEN
  9. COREG [Concomitant]
     Active Substance: CARVEDILOL
  10. LEVEMIR [Concomitant]
     Active Substance: INSULIN DETEMIR
  11. FONAPARINUX [Suspect]
     Active Substance: FONDAPARINUX
     Indication: ANTIPHOSPHOLIPID SYNDROME
     Route: 058
  12. DOCUSATESODIUM [Concomitant]
  13. KLOR-CON M 10 [Concomitant]
  14. AMBIEN [Concomitant]
     Active Substance: ZOLPIDEM TARTRATE
  15. FUROSEMIDE. [Concomitant]
     Active Substance: FUROSEMIDE
  16. HUMALOG [Concomitant]
     Active Substance: INSULIN LISPRO

REACTIONS (1)
  - Cardiac disorder [None]
